FAERS Safety Report 14449488 (Version 1)
Quarter: 2018Q1

REPORT INFORMATION
  Report Type: Spontaneous
  Country: DE (occurrence: DE)
  Receive Date: 20180127
  Receipt Date: 20180127
  Transmission Date: 20180509
  Serious: Yes (Hospitalization, Other)
  Sender: FDA-Public Use
  Company Number: DE-ROCHE-2020977

PATIENT
  Age: 5 Year
  Sex: Male

DRUGS (30)
  1. VORICONAZOLE. [Concomitant]
     Active Substance: VORICONAZOLE
  2. PIPERACILLIN/TAZOBACTAM [Concomitant]
     Active Substance: PIPERACILLIN SODIUM\TAZOBACTAM SODIUM
  3. MEROPENEM TRIHYDRATE [Concomitant]
     Active Substance: MEROPENEM
  4. METAMIZOLE [Concomitant]
     Active Substance: METAMIZOLE
  5. CYCLOPHOSPHAMIDE. [Concomitant]
     Active Substance: CYCLOPHOSPHAMIDE
     Route: 065
  6. TISAGENLECLEUCEL. [Concomitant]
     Active Substance: TISAGENLECLEUCEL
     Dosage: DOSAGE IS UNCERTAIN.?REPORTED AS CTL019
     Route: 041
  7. GENTAMICIN. [Concomitant]
     Active Substance: GENTAMICIN
  8. TEICOPLANIN [Concomitant]
     Active Substance: TEICOPLANIN
  9. ACYCLOVIR. [Concomitant]
     Active Substance: ACYCLOVIR
  10. FLUDARABINE [Concomitant]
     Active Substance: FLUDARABINE PHOSPHATE
  11. AMIKACIN [Concomitant]
     Active Substance: AMIKACIN
  12. PREDNISOLONE. [Concomitant]
     Active Substance: PREDNISOLONE
  13. ACYCLOVIR. [Concomitant]
     Active Substance: ACYCLOVIR
  14. IMMUNOGLOBULIN (IMMUNOGLOBULIN HUMAN NORMAL) [Concomitant]
     Active Substance: HUMAN IMMUNOGLOBULIN G
  15. CEFTRIAXONE SODIUM. [Concomitant]
     Active Substance: CEFTRIAXONE SODIUM
     Route: 065
  16. CLARITHROMYCIN. [Concomitant]
     Active Substance: CLARITHROMYCIN
  17. AMPHOTERICIN [Concomitant]
     Active Substance: AMPHOTERICIN B
  18. METHYLPREDNISOLONE. [Concomitant]
     Active Substance: METHYLPREDNISOLONE
  19. ACTEMRA [Suspect]
     Active Substance: TOCILIZUMAB
     Indication: CYTOKINE RELEASE SYNDROME
     Dosage: DOSAGE IS UNCERTAIN.
     Route: 065
     Dates: start: 20161224
  20. TEICOPLANIN [Concomitant]
     Active Substance: TEICOPLANIN
  21. IBUPROFEN. [Concomitant]
     Active Substance: IBUPROFEN
  22. BACTRAMIN [Concomitant]
     Active Substance: SULFAMETHOXAZOLE\TRIMETHOPRIM
     Route: 065
  23. SULFAMETHOXAZOLE/TRIMETHOPRIM [Concomitant]
     Active Substance: SULFAMETHOXAZOLE\TRIMETHOPRIM
     Route: 065
  24. VORICONAZOLE. [Concomitant]
     Active Substance: VORICONAZOLE
  25. COTRIMOXAZOLE [Concomitant]
     Active Substance: SULFAMETHOXAZOLE\TRIMETHOPRIM
     Route: 065
  26. METHOTREXATE. [Concomitant]
     Active Substance: METHOTREXATE
  27. PARACETAMOL [Concomitant]
     Active Substance: ACETAMINOPHEN
  28. PIPERACILLIN [Concomitant]
     Active Substance: PIPERACILLIN
  29. TOBRAMYCINE [Concomitant]
     Active Substance: TOBRAMYCIN SULFATE
  30. CYTARABINE. [Concomitant]
     Active Substance: CYTARABINE

REACTIONS (4)
  - Staphylococcal sepsis [Recovered/Resolved]
  - Hydrocephalus [Recovering/Resolving]
  - Device related infection [Recovered/Resolved]
  - White blood cell count decreased [Recovered/Resolved]

NARRATIVE: CASE EVENT DATE: 20170102
